FAERS Safety Report 17622611 (Version 2)
Quarter: 2020Q2

REPORT INFORMATION
  Report Type: Spontaneous
  Country: US (occurrence: US)
  Receive Date: 20200403
  Receipt Date: 20200406
  Transmission Date: 20200713
  Serious: Yes (Hospitalization, Other)
  Sender: FDA-Public Use
  Company Number: US-PFIZER INC-2020136491

PATIENT
  Age: 63 Year
  Sex: Male

DRUGS (1)
  1. DEPO-TESTOSTERONE [Suspect]
     Active Substance: TESTOSTERONE CYPIONATE
     Indication: TRANSGENDER HORMONAL THERAPY
     Dosage: 200 MG, 2X/WEEK, (TWICE WEEKLY)
     Route: 030

REACTIONS (2)
  - Cardiac arrest [Recovered/Resolved]
  - Brugada syndrome [Recovering/Resolving]
